FAERS Safety Report 4763364-5 (Version None)
Quarter: 2005Q3

REPORT INFORMATION
  Report Type: 
  Country: None (occurrence: None)
  Receive Date: 20050831
  Receipt Date: 20050819
  Transmission Date: 20060218
  Serious: Yes (Other)
  Sender: FDA-Public Use
  Company Number: 2005BH001162

PATIENT
  Age: 37 Year
  Sex: Female

DRUGS (1)
  1. LACTATED RINGER'S [Suspect]
     Indication: CAESAREAN SECTION
     Dosage: 125 ML; ONCE; IV
     Route: 042
     Dates: start: 20050725, end: 20050725

REACTIONS (9)
  - DRUG EXPOSURE DURING PREGNANCY [None]
  - DYSPNOEA [None]
  - FEELING ABNORMAL [None]
  - HYPERSENSITIVITY [None]
  - ORAL MUCOSAL DISORDER [None]
  - PALMAR ERYTHEMA [None]
  - PRURITUS GENERALISED [None]
  - RASH [None]
  - THROAT IRRITATION [None]
